FAERS Safety Report 7821986-9 (Version None)
Quarter: 2011Q4

REPORT INFORMATION
  Report Type: 
  Country: None (occurrence: None)
  Receive Date: 20111018
  Receipt Date: 20100929
  Transmission Date: 20120403
  Serious: No
  Sender: FDA-Public Use
  Company Number: US-ASTRAZENECA-2010SE25977

PATIENT
  Age: 17972 Day
  Sex: Female

DRUGS (3)
  1. ALBUTEROL [Concomitant]
     Indication: RESPIRATORY DISORDER
  2. SYMBICORT [Suspect]
     Dosage: 160/4.5 MCG TWO PUFFS BID
     Route: 055
     Dates: start: 20090101
  3. SYMBICORT [Suspect]
     Dosage: 160/4.5 MCG TWO PUFFS AS REQUIRED
     Route: 055
     Dates: start: 20090101

REACTIONS (1)
  - WHEEZING [None]
